FAERS Safety Report 10986981 (Version 1)
Quarter: 2015Q2

REPORT INFORMATION
  Report Type: Spontaneous
  Country: US (occurrence: None)
  Receive Date: 20150402
  Receipt Date: 20150402
  Transmission Date: 20150821
  Serious: Yes (Life-Threatening)
  Sender: FDA-Public Use
  Company Number: 2805633

PATIENT
  Age: 39 Year
  Sex: Female

DRUGS (1)
  1. METOPROLOL TARTRATE. [Suspect]
     Active Substance: METOPROLOL TARTRATE
     Indication: MYOCARDIAL INFARCTION

REACTIONS (5)
  - Acute respiratory failure [None]
  - Condition aggravated [None]
  - Pulmonary oedema [None]
  - Circulatory collapse [None]
  - Phaeochromocytoma crisis [None]
